FAERS Safety Report 6534852-6 (Version None)
Quarter: 2010Q1

REPORT INFORMATION
  Report Type: 
  Country: None (occurrence: None)
  Receive Date: 20100112
  Receipt Date: 20100107
  Transmission Date: 20100710
  Serious: Yes (Hospitalization, Other)
  Sender: FDA-Public Use
  Company Number: PHEH2009US18525

PATIENT
  Sex: Female

DRUGS (4)
  1. NEORAL [Suspect]
     Indication: PROPHYLAXIS AGAINST TRANSPLANT REJECTION
     Dosage: 125 MG, BID
     Route: 048
     Dates: start: 20040101
  2. NEORAL [Suspect]
     Indication: RENAL TRANSPLANT
  3. MYFORTIC [Concomitant]
     Indication: PROPHYLAXIS AGAINST TRANSPLANT REJECTION
     Dosage: 360 MG, BID
     Route: 048
     Dates: start: 20040101
  4. COUMADIN [Concomitant]

REACTIONS (3)
  - CLOSTRIDIAL INFECTION [None]
  - ESCHERICHIA BACTERAEMIA [None]
  - NEPHRECTOMY [None]
